FAERS Safety Report 5983851-1 (Version None)
Quarter: 2008Q4

REPORT INFORMATION
  Report Type: 
  Country: None (occurrence: None)
  Receive Date: 20081208
  Receipt Date: 20081127
  Transmission Date: 20090506
  Serious: Yes (Hospitalization)
  Sender: FDA-Public Use
  Company Number: PHHO2007MX07461

PATIENT
  Sex: Female

DRUGS (5)
  1. DIOVAN HCT [Suspect]
     Indication: HYPERTENSION
     Dosage: 160/25/DAY
     Dates: start: 20070101
  2. PRIMPERAN TAB [Concomitant]
  3. SIMVASTATIN [Concomitant]
  4. FUROSEMIDE [Concomitant]
  5. GLYBURIDE [Concomitant]

REACTIONS (3)
  - GASTROINTESTINAL DISORDER THERAPY [None]
  - GASTROINTESTINAL MOTILITY DISORDER [None]
  - RENAL DISORDER [None]
